FAERS Safety Report 22301469 (Version 1)
Quarter: 2023Q2

REPORT INFORMATION
  Report Type: Report from Study
  Country: US (occurrence: US)
  Receive Date: 20230509
  Receipt Date: 20230509
  Transmission Date: 20230721
  Serious: Yes (Hospitalization)
  Sender: FDA-Public Use
  Company Number: US-ABBVIE-4726171

PATIENT
  Age: 54 Year
  Sex: Female

DRUGS (2)
  1. HUMIRA [Suspect]
     Active Substance: ADALIMUMAB
     Indication: Rheumatoid arthritis
     Dosage: START DATE 2023
     Route: 058
  2. HUMIRA [Suspect]
     Active Substance: ADALIMUMAB
     Dosage: END DATE 2023
     Route: 058
     Dates: start: 20211206

REACTIONS (7)
  - Rheumatoid arthritis [Not Recovered/Not Resolved]
  - Gait inability [Unknown]
  - Pneumonia [Recovering/Resolving]
  - Nephrolithiasis [Recovering/Resolving]
  - Nasopharyngitis [Unknown]
  - Arthropathy [Unknown]
  - Musculoskeletal disorder [Unknown]

NARRATIVE: CASE EVENT DATE: 20230301
